FAERS Safety Report 8368320-6 (Version None)
Quarter: 2012Q2

REPORT INFORMATION
  Report Type: 
  Country: None (occurrence: None)
  Receive Date: 20120517
  Receipt Date: 20120502
  Transmission Date: 20120825
  Serious: Yes (Other)
  Sender: FDA-Public Use
  Company Number: CHPA2012US010479

PATIENT
  Age: 77 Year
  Sex: Female

DRUGS (3)
  1. TYLENOL (CAPLET) [Concomitant]
     Dosage: 1 UNK, UNK
     Route: 048
  2. EXCEDRIN (MIGRAINE) [Suspect]
     Dosage: 2 DF, UNK
     Route: 048
  3. EXCEDRIN (MIGRAINE) [Suspect]
     Indication: MIGRAINE
     Dosage: 1 DF, UNK
     Route: 048

REACTIONS (5)
  - THERAPEUTIC RESPONSE UNEXPECTED [None]
  - BLOOD PRESSURE INCREASED [None]
  - UNDERDOSE [None]
  - DISEASE RECURRENCE [None]
  - VOMITING [None]
